FAERS Safety Report 5557943-5 (Version None)
Quarter: 2007Q4

REPORT INFORMATION
  Report Type: 
  Country: None (occurrence: None)
  Receive Date: 20071214
  Receipt Date: 20071204
  Transmission Date: 20080405
  Serious: Yes (Disabling)
  Sender: FDA-Public Use
  Company Number: CA-ROCHE-513482

PATIENT
  Age: 72 Year
  Sex: Female
  Weight: 59 kg

DRUGS (9)
  1. XELODA [Suspect]
     Dosage: STRENGTHS: 150 MG AND 500 MG; THE PATIENT RECEIVED 1X150 MG AND 2X500 MG TABLETS, TWICE DAILY
     Route: 048
     Dates: start: 20070108, end: 20070820
  2. BISOPROLOL [Concomitant]
  3. LIPITOR [Concomitant]
     Route: 048
  4. MONOPRIL [Concomitant]
     Dosage: MONOPRIL HAS BEEN TAKEN FOR MORE THAN 1 YEAR.
     Route: 048
  5. LOZIDE [Concomitant]
  6. HALOPERIDOL [Concomitant]
     Dosage: DOSE REPORTED AS 1/2 X HS PRN.
     Route: 048
  7. XANAX [Concomitant]
     Dosage: DOSE REPORTED: 1 X HS PRN
     Route: 048
  8. SENOKOT [Concomitant]
     Dosage: FREQUENCY: PRN
     Route: 048
  9. DOCUSATE CALCIUM [Concomitant]
     Route: 048

REACTIONS (4)
  - DEAFNESS [None]
  - EAR DISCOMFORT [None]
  - TINNITUS [None]
  - VERTIGO [None]
